FAERS Safety Report 15578418 (Version 1)
Quarter: 2018Q4

REPORT INFORMATION
  Report Type: Report from Study
  Country: CO (occurrence: CO)
  Receive Date: 20181102
  Receipt Date: 20181102
  Transmission Date: 20190205
  Serious: Yes (Death, Hospitalization)
  Sender: FDA-Public Use
  Company Number: PHHY2018CO140743

PATIENT
  Age: 55 Year
  Sex: Female
  Weight: 45 kg

DRUGS (2)
  1. TASIGNA [Suspect]
     Active Substance: NILOTINIB
     Indication: CHRONIC MYELOID LEUKAEMIA
     Dosage: 400 MG, QD
     Route: 048
     Dates: start: 201801, end: 20180828
  2. ALPRAZOLAM. [Concomitant]
     Active Substance: ALPRAZOLAM
     Indication: SLEEP DISORDER
     Dosage: 0.05 MG, QD
     Route: 048

REACTIONS (14)
  - Haemoglobin decreased [Fatal]
  - Immunodeficiency [Fatal]
  - Multiple organ dysfunction syndrome [Fatal]
  - Chronic myeloid leukaemia recurrent [Fatal]
  - Renal failure [Fatal]
  - Hepatitis [Fatal]
  - Pneumonia bacterial [Fatal]
  - Inappropriate schedule of product administration [Unknown]
  - Oxygen saturation decreased [Fatal]
  - Respiratory failure [Fatal]
  - Chronic myeloid leukaemia [Fatal]
  - Malignant neoplasm progression [Fatal]
  - Swelling [Fatal]
  - Platelet count decreased [Fatal]

NARRATIVE: CASE EVENT DATE: 20180910
